FAERS Safety Report 25764013 (Version 1)
Quarter: 2025Q3

REPORT INFORMATION
  Report Type: Spontaneous
  Country: EU (occurrence: EU)
  Receive Date: 20250905
  Receipt Date: 20250905
  Transmission Date: 20251021
  Serious: Yes (Other)
  Sender: ALEXION PHARMACEUTICALS
  Company Number: None

PATIENT
  Age: 74 Year
  Sex: Female

DRUGS (1)
  1. TRUQAP [Suspect]
     Active Substance: CAPIVASERTIB
     Indication: Breast cancer
     Dosage: 400 MG (DUE COMPRESSE DA 200 MG) DUE VOLTE AL GIORNO, A CIRCA 12 ORE DI DISTANZA (DOSE GIORNALIERA TOTALE DI 800 MG), PER 4 GIORNI SEGUITI DA 3 GIORNI SENZA TRATTAMENTO
     Dates: start: 20250509, end: 20250725

REACTIONS (2)
  - Arthralgia [Recovered/Resolved]
  - Myalgia [Recovered/Resolved]

NARRATIVE: CASE EVENT DATE: 20250523
